FAERS Safety Report 4481942-8 (Version None)
Quarter: 2004Q4

REPORT INFORMATION
  Report Type: 
  Country: None (occurrence: None)
  Receive Date: 20041020
  Receipt Date: 20041004
  Transmission Date: 20050328
  Serious: Yes (Other)
  Sender: FDA-Public Use
  Company Number: FR_040904770

PATIENT
  Age: 33 Year
  Sex: Male

DRUGS (4)
  1. ZYPREXA [Suspect]
     Dosage: 10 MG/1 DAY
     Dates: start: 20040701
  2. LEVOTONINE (OXITRIPTAN) [Concomitant]
  3. NOOTROPYL (PIRACETAM) [Concomitant]
  4. CLONAZEPAM [Concomitant]

REACTIONS (4)
  - FALL [None]
  - FRACTURE [None]
  - NAUSEA [None]
  - UPPER LIMB FRACTURE [None]
